FAERS Safety Report 21728310 (Version 1)
Quarter: 2022Q4

REPORT INFORMATION
  Report Type: Spontaneous
  Country: US (occurrence: US)
  Receive Date: 20221214
  Receipt Date: 20221214
  Transmission Date: 20230112
  Serious: Yes (Other)
  Sender: FDA-Public Use
  Company Number: US-PFIZER INC-202201361120

PATIENT
  Age: 31 Year
  Sex: Female

DRUGS (1)
  1. PAXLOVID [Suspect]
     Active Substance: NIRMATRELVIR\RITONAVIR
     Indication: COVID-19 treatment
     Dosage: UNK
     Dates: start: 20221203, end: 20221205

REACTIONS (8)
  - Serotonin syndrome [Recovered/Resolved with Sequelae]
  - Hepatitis [Recovered/Resolved with Sequelae]
  - Abdominal pain upper [Recovered/Resolved with Sequelae]
  - Dysgeusia [Recovered/Resolved with Sequelae]
  - Migraine [Recovered/Resolved with Sequelae]
  - Nausea [Recovered/Resolved with Sequelae]
  - Eye irritation [Recovered/Resolved with Sequelae]
  - Cardiovascular disorder [Recovered/Resolved with Sequelae]

NARRATIVE: CASE EVENT DATE: 20221204
